FAERS Safety Report 7260505-5 (Version None)
Quarter: 2011Q1

REPORT INFORMATION
  Report Type: 
  Country: None (occurrence: None)
  Receive Date: 20110130
  Receipt Date: 20101119
  Transmission Date: 20110831
  Serious: No
  Sender: FDA-Public Use
  Company Number: US-ABBOTT-10P-163-0686939-00

PATIENT
  Age: 52 Year
  Sex: Female

DRUGS (3)
  1. UNKNOWN MEDICATIONS [Concomitant]
     Indication: PAIN
  2. OXYCODONE [Concomitant]
     Indication: PAIN
  3. HUMIRA [Suspect]
     Indication: RHEUMATOID ARTHRITIS
     Dates: start: 20100501

REACTIONS (4)
  - NAUSEA [None]
  - JOINT SWELLING [None]
  - PAIN [None]
  - BACK PAIN [None]
